FAERS Safety Report 18004892 (Version 1)
Quarter: 2020Q3

REPORT INFORMATION
  Report Type: Spontaneous
  Country: US (occurrence: US)
  Receive Date: 20200709
  Receipt Date: 20200709
  Transmission Date: 20201103
  Serious: Yes (Other)
  Sender: FDA-Public Use
  Company Number: None

PATIENT
  Age: 56 Year
  Sex: Female
  Weight: 94.7 kg

DRUGS (2)
  1. REMDESIVIR. [Suspect]
     Active Substance: REMDESIVIR
     Indication: COVID-19
     Dosage: ?          OTHER FREQUENCY:ONCE;?
     Route: 042
     Dates: start: 20200708, end: 20200708
  2. ENOXAPARIN 40MG SUBQ Q24H [Concomitant]
     Dates: start: 20200708

REACTIONS (4)
  - Infusion related reaction [None]
  - Blindness [None]
  - Nausea [None]
  - Eye irritation [None]

NARRATIVE: CASE EVENT DATE: 20200708
